FAERS Safety Report 13884271 (Version 1)
Quarter: 2017Q3

REPORT INFORMATION
  Report Type: Spontaneous
  Country: US (occurrence: US)
  Receive Date: 20170821
  Receipt Date: 20170821
  Transmission Date: 20171127
  Serious: Yes (Other)
  Sender: FDA-Public Use
  Company Number: US-TEVA-761376USA

PATIENT
  Age: 76 Year
  Sex: Female

DRUGS (6)
  1. OXALIPLATIN. [Suspect]
     Active Substance: OXALIPLATIN
     Dosage: 100MG/20ML
     Route: 065
  2. ELIQUIS [Concomitant]
     Active Substance: APIXABAN
  3. BETAMETHASONE VALERATE. [Concomitant]
     Active Substance: BETAMETHASONE VALERATE
  4. HYDROCODONE [Concomitant]
     Active Substance: HYDROCODONE
  5. ASA [Concomitant]
     Active Substance: ASPIRIN
  6. OXALIPLATIN. [Suspect]
     Active Substance: OXALIPLATIN
     Dosage: 50MG/10 ML
     Route: 065

REACTIONS (7)
  - Dyspnoea [Unknown]
  - Flushing [Unknown]
  - Vomiting [Recovered/Resolved]
  - Nausea [Recovered/Resolved]
  - Pruritus [Recovered/Resolved]
  - Hypotension [Recovered/Resolved]
  - Erythema [Recovered/Resolved]

NARRATIVE: CASE EVENT DATE: 20170131
